FAERS Safety Report 17344021 (Version 2)
Quarter: 2020Q1

REPORT INFORMATION
  Report Type: Spontaneous
  Country: NL (occurrence: NL)
  Receive Date: 20200129
  Receipt Date: 20200224
  Transmission Date: 20200409
  Serious: Yes (Hospitalization)
  Sender: FDA-Public Use
  Company Number: NVSC2020NL019038

PATIENT
  Age: 78 Year
  Sex: Male
  Weight: 84 kg

DRUGS (6)
  1. APIXABAN [Concomitant]
     Active Substance: APIXABAN
     Indication: PRODUCT USED FOR UNKNOWN INDICATION
     Route: 065
  2. EXJADE [Suspect]
     Active Substance: DEFERASIROX
     Indication: IRON OVERLOAD
  3. BUMETANIDE. [Concomitant]
     Active Substance: BUMETANIDE
     Indication: PRODUCT USED FOR UNKNOWN INDICATION
     Route: 065
  4. METOPROLOLSUCCINAAT [Concomitant]
     Active Substance: METOPROLOL SUCCINATE
     Indication: PRODUCT USED FOR UNKNOWN INDICATION
     Route: 065
  5. DUTASTERIDE. [Concomitant]
     Active Substance: DUTASTERIDE
     Indication: PRODUCT USED FOR UNKNOWN INDICATION
     Route: 065
  6. EXJADE [Suspect]
     Active Substance: DEFERASIROX
     Indication: BLOOD IRON ABNORMAL
     Dosage: 720 MG, QD 1 X DAAGS 2 TABLETTEN VAN 360MG (1DD2 )
     Route: 048
     Dates: start: 20191021, end: 20191025

REACTIONS (6)
  - Somnolence [Recovering/Resolving]
  - Dizziness [Recovering/Resolving]
  - Rash [Recovered/Resolved]
  - Influenza like illness [Recovered/Resolved]
  - Blister [Recovering/Resolving]
  - Angioedema [Recovered/Resolved]

NARRATIVE: CASE EVENT DATE: 20191022
